FAERS Safety Report 10907633 (Version 1)
Quarter: 2015Q1

REPORT INFORMATION
  Report Type: Spontaneous
  Country: US (occurrence: US)
  Receive Date: 20150312
  Receipt Date: 20150312
  Transmission Date: 20150721
  Serious: No
  Sender: FDA-Public Use
  Company Number: US-PFIZER INC-2015086196

PATIENT
  Sex: Female

DRUGS (5)
  1. VERSID [Suspect]
     Active Substance: MEBENDAZOLE
     Dosage: UNK
  2. HALDOL [Suspect]
     Active Substance: HALOPERIDOL
     Dosage: UNK
  3. AMBIEN [Suspect]
     Active Substance: ZOLPIDEM TARTRATE
     Dosage: UNK
  4. FLAGYL [Suspect]
     Active Substance: METRONIDAZOLE\METRONIDAZOLE HYDROCHLORIDE
     Dosage: UNK
  5. THORAZINE [Suspect]
     Active Substance: CHLORPROMAZINE
     Dosage: UNK

REACTIONS (1)
  - Drug hypersensitivity [Unknown]
